FAERS Safety Report 7879695-6 (Version None)
Quarter: 2011Q4

REPORT INFORMATION
  Report Type: 
  Country: None (occurrence: None)
  Receive Date: 20111101
  Receipt Date: 20110914
  Transmission Date: 20120403
  Serious: No
  Sender: FDA-Public Use
  Company Number: US-ABBOTT-11P-163-0854956-00

PATIENT
  Sex: Female

DRUGS (1)
  1. BIAXIN [Suspect]
     Indication: BRONCHITIS

REACTIONS (5)
  - HYPERHIDROSIS [None]
  - VOMITING [None]
  - NAUSEA [None]
  - FEELING COLD [None]
  - INFLUENZA LIKE ILLNESS [None]
